FAERS Safety Report 21470392 (Version 2)
Quarter: 2022Q4

REPORT INFORMATION
  Report Type: Spontaneous
  Country: US (occurrence: None)
  Receive Date: 20221018
  Receipt Date: 20221020
  Transmission Date: 20230113
  Serious: Yes (Death)
  Sender: FDA-Public Use
  Company Number: US-ROCHE-3201402

PATIENT
  Sex: Male

DRUGS (2)
  1. COTELLIC [Suspect]
     Active Substance: COBIMETINIB
     Indication: Lung neoplasm malignant
     Dosage: 1 A DAY IN 21 DAYS ON DAY 1 THRU 21 OF 28 DAYS OF CYCLE,
     Route: 048
     Dates: start: 202208
  2. ZELBORAF [Suspect]
     Active Substance: VEMURAFENIB
     Indication: Lung neoplasm malignant
     Dosage: 3 TABLET (720 MG TABLET) BY MOUTH IN MORNING AND 3 TABLET (720 MG TABLET) BY MOUTH BEFORE BEDTIME.
     Route: 048
     Dates: start: 202208

REACTIONS (2)
  - Death [Fatal]
  - Off label use [Unknown]

NARRATIVE: CASE EVENT DATE: 20220801
